FAERS Safety Report 4619565-X (Version None)
Quarter: 2005Q1

REPORT INFORMATION
  Report Type: 
  Country: None (occurrence: None)
  Receive Date: 20050318
  Receipt Date: 20050318
  Transmission Date: 20050727
  Serious: Yes (Hospitalization)
  Sender: FDA-Public Use
  Company Number: None

PATIENT
  Sex: Female
  Weight: 61.2356 kg

DRUGS (4)
  1. ADDERALL 10 [Suspect]
     Indication: MENTAL DISORDER
     Dosage: PO
  2. STOOL SOFTENERS [Concomitant]
  3. KLONOPIN [Concomitant]
  4. DEPAKOTE [Concomitant]

REACTIONS (3)
  - FEELING ABNORMAL [None]
  - HEART RATE IRREGULAR [None]
  - PARAESTHESIA [None]
